FAERS Safety Report 4625802-8 (Version None)
Quarter: 2005Q1

REPORT INFORMATION
  Report Type: 
  Country: None (occurrence: None)
  Receive Date: 20050330
  Receipt Date: 20050315
  Transmission Date: 20050727
  Serious: Yes (Death, Hospitalization)
  Sender: FDA-Public Use
  Company Number: 213190

PATIENT
  Age: 71 Year
  Sex: Female

DRUGS (5)
  1. MABTHERA(RITUXIMAB) CONC FOR SOLUTION FOR INFUSION [Suspect]
     Indication: NON-HODGKIN'S LYMPHOMA
  2. CYCLOPHOSPHAMIDE [Suspect]
     Indication: NON-HODGKIN'S LYMPHOMA
  3. VINCRISTINE [Suspect]
     Indication: NON-HODGKIN'S LYMPHOMA
  4. DOXORUBICIN HYDROCHLORIDE [Suspect]
     Indication: NON-HODGKIN'S LYMPHOMA
  5. PREDNISONE [Suspect]
     Indication: NON-HODGKIN'S LYMPHOMA

REACTIONS (10)
  - BRONCHOPNEUMONIA [None]
  - BRONCHOSCOPY ABNORMAL [None]
  - CARDIOVASCULAR DISORDER [None]
  - DRUG RESISTANCE [None]
  - GENERAL PHYSICAL HEALTH DETERIORATION [None]
  - HYPOTONIA [None]
  - SEPSIS [None]
  - STAPHYLOCOCCAL INFECTION [None]
  - TACHYCARDIA [None]
  - THERAPY NON-RESPONDER [None]
